FAERS Safety Report 18696994 (Version 1)
Quarter: 2021Q1

REPORT INFORMATION
  Report Type: Spontaneous
  Country: CN (occurrence: CN)
  Receive Date: 20210104
  Receipt Date: 20210104
  Transmission Date: 20210419
  Serious: Yes (Other)
  Sender: FDA-Public Use
  Company Number: CN-PFIZER INC-2020513195

PATIENT
  Age: 80 Year
  Sex: Male
  Weight: 57 kg

DRUGS (2)
  1. SUTENT [Suspect]
     Active Substance: SUNITINIB MALATE
     Indication: SYMPTOMATIC TREATMENT
     Dosage: 50 MG, CYCLIC (D1?28 6 WEEKS/CYCLE)
     Route: 048
     Dates: start: 20201202, end: 20201218
  2. SUTENT [Suspect]
     Active Substance: SUNITINIB MALATE
     Indication: RENAL CANCER

REACTIONS (4)
  - Platelet count decreased [Recovering/Resolving]
  - Hiccups [Recovered/Resolved]
  - White blood cell count decreased [Recovering/Resolving]
  - Decreased appetite [Unknown]

NARRATIVE: CASE EVENT DATE: 20201216
